FAERS Safety Report 16321180 (Version 1)
Quarter: 2019Q2

REPORT INFORMATION
  Report Type: Spontaneous
  Country: DE (occurrence: DE)
  Receive Date: 20190516
  Receipt Date: 20190516
  Transmission Date: 20190711
  Serious: Yes (Hospitalization, Other)
  Sender: FDA-Public Use
  Company Number: DE-PFIZER INC-2019201430

PATIENT
  Age: 60 Year
  Sex: Female
  Weight: 94 kg

DRUGS (11)
  1. AMLODIPINE BESILATE [Suspect]
     Active Substance: AMLODIPINE BESYLATE
     Dosage: UNK
     Route: 050
     Dates: start: 201808
  2. METOPROLOLSUCCINAT DURA [Suspect]
     Active Substance: METOPROLOL SUCCINATE
     Dosage: TAPER THE BLOOD PRESSURE DRUGS
     Dates: start: 2019
  3. CANDESARTAN ZENTIVA [Suspect]
     Active Substance: CANDESARTAN CILEXETIL
     Indication: BLOOD PRESSURE FLUCTUATION
     Dosage: UNK
     Dates: start: 201808
  4. EUTHYROX [Suspect]
     Active Substance: LEVOTHYROXINE SODIUM
     Indication: AUTOIMMUNE THYROIDITIS
     Dosage: 125 UG, 1X/DAY
     Dates: start: 1983
  5. BROMAZEPAM [Concomitant]
     Active Substance: BROMAZEPAM
     Dosage: UNK
     Dates: start: 201808
  6. METOPROLOLSUCCINAT DURA [Suspect]
     Active Substance: METOPROLOL SUCCINATE
     Indication: BLOOD PRESSURE FLUCTUATION
     Dosage: 47 (UNSPECIFIED UNITS)
     Dates: start: 201808
  7. ZOLPIDEM AL [Concomitant]
     Active Substance: ZOLPIDEM TARTRATE
     Dosage: UNK
     Dates: start: 201808
  8. SIMVASTATIN. [Concomitant]
     Active Substance: SIMVASTATIN
     Dosage: UNK
     Dates: start: 201808
  9. AMLODIPINE BESILATE [Suspect]
     Active Substance: AMLODIPINE BESYLATE
     Indication: BLOOD PRESSURE FLUCTUATION
     Dosage: TAPER THE BLOOD PRESSURE DRUGS
     Dates: start: 2019
  10. EUTHYROX [Suspect]
     Active Substance: LEVOTHYROXINE SODIUM
     Dosage: 112 UG, 1X/DAY (REDUCED)
     Dates: start: 2011
  11. CANDESARTAN ZENTIVA [Suspect]
     Active Substance: CANDESARTAN CILEXETIL
     Dosage: TAPER THE BLOOD PRESSURE DRUGS
     Dates: start: 2019

REACTIONS (8)
  - Disturbance in attention [Unknown]
  - Arrhythmia [Recovering/Resolving]
  - Visual impairment [Recovering/Resolving]
  - Blepharospasm [Recovering/Resolving]
  - Feeling hot [Unknown]
  - Blood pressure increased [Unknown]
  - Disorientation [Unknown]
  - Sleep apnoea syndrome [Unknown]

NARRATIVE: CASE EVENT DATE: 201808
